FAERS Safety Report 8555432-7 (Version None)
Quarter: 2012Q3

REPORT INFORMATION
  Report Type: 
  Country: None (occurrence: None)
  Receive Date: 20120731
  Receipt Date: 20110825
  Transmission Date: 20120928
  Serious: Yes (Other)
  Sender: FDA-Public Use
  Company Number: US-ASTRAZENECA-2011SE12584

PATIENT
  Sex: Male

DRUGS (6)
  1. PAROXETINE [Concomitant]
     Dates: start: 20090223
  2. SEROQUEL [Suspect]
     Route: 048
     Dates: start: 20090223
  3. DIVALPROEX EXTENDED-RELEASE [Concomitant]
     Dates: start: 20090223
  4. AMLODIPINE-BENAZ [Concomitant]
     Dosage: 10/20 MG
     Dates: start: 20090223
  5. GEODON [Concomitant]
     Dates: start: 20090223
  6. MIRAPEX [Concomitant]
     Dates: start: 20090223

REACTIONS (3)
  - DIABETIC COMA [None]
  - TYPE 2 DIABETES MELLITUS [None]
  - PANCREATITIS [None]
